FAERS Safety Report 4834532-9 (Version None)
Quarter: 2005Q4

REPORT INFORMATION
  Report Type: 
  Country: None (occurrence: None)
  Receive Date: 20051122
  Receipt Date: 20050210
  Transmission Date: 20060501
  Serious: No
  Sender: FDA-Public Use
  Company Number: US-BRISTOL-MYERS SQUIBB COMPANY-12857371

PATIENT
  Age: 73 Year
  Sex: Female
  Weight: 61 kg

DRUGS (6)
  1. PRAVACHOL [Suspect]
     Indication: BLOOD CHOLESTEROL INCREASED
     Route: 048
     Dates: start: 20040701, end: 20050131
  2. LOTENSIN [Concomitant]
  3. ASPIRIN [Concomitant]
  4. PROPRANOLOL [Concomitant]
  5. TOBRADEX [Concomitant]
  6. FLUOCINONIDE [Concomitant]

REACTIONS (1)
  - RASH [None]
